FAERS Safety Report 17007109 (Version 1)
Quarter: 2019Q4

REPORT INFORMATION
  Report Type: Spontaneous
  Country: US (occurrence: US)
  Receive Date: 20190926
  Receipt Date: 20190926
  Transmission Date: 20200122
  Serious: Yes (Death, Hospitalization)
  Sender: FDA-Public Use
  Company Number: None

PATIENT
  Age: 77 Year
  Sex: Female
  Weight: 75 kg

DRUGS (2)
  1. OLANZAPINE. [Suspect]
     Active Substance: OLANZAPINE
     Dates: end: 20190921
  2. SANCTURA [Concomitant]
     Active Substance: TROSPIUM CHLORIDE

REACTIONS (10)
  - Faecaloma [None]
  - Vomiting [None]
  - White blood cell count increased [None]
  - Neutrophil percentage increased [None]
  - Abdominal distension [None]
  - Constipation [None]
  - Eructation [None]
  - Loss of consciousness [None]
  - Abdominal discomfort [None]
  - Haematemesis [None]

NARRATIVE: CASE EVENT DATE: 20190922
